FAERS Safety Report 19139003 (Version 3)
Quarter: 2021Q2

REPORT INFORMATION
  Report Type: Spontaneous
  Country: GR (occurrence: GR)
  Receive Date: 20210415
  Receipt Date: 20210622
  Transmission Date: 20210717
  Serious: Yes (Other)
  Sender: FDA-Public Use
  Company Number: GR-009507513-2103GRC003067

PATIENT
  Age: 71 Year
  Sex: Female

DRUGS (3)
  1. FEMARA [Concomitant]
     Active Substance: LETROZOLE
     Indication: BREAST CANCER
     Dosage: UNK
     Dates: start: 2011
  2. KEYTRUDA [Suspect]
     Active Substance: PEMBROLIZUMAB
     Dosage: 2ND INFUSION
     Dates: start: 20210120
  3. KEYTRUDA [Suspect]
     Active Substance: PEMBROLIZUMAB
     Indication: LUNG NEOPLASM MALIGNANT
     Dosage: 1ST INFUSION
     Dates: start: 202012

REACTIONS (7)
  - Gamma-glutamyltransferase increased [Unknown]
  - Transaminases increased [Recovered/Resolved]
  - Fatigue [Unknown]
  - Thyroid disorder [Recovered/Resolved]
  - Vomiting [Unknown]
  - Decreased appetite [Unknown]
  - Breast conserving surgery [Unknown]

NARRATIVE: CASE EVENT DATE: 2021
